FAERS Safety Report 6942438-4 (Version None)
Quarter: 2010Q3

REPORT INFORMATION
  Report Type: 
  Country: None (occurrence: None)
  Receive Date: 20100826
  Receipt Date: 20100811
  Transmission Date: 20110219
  Serious: Yes (Other)
  Sender: FDA-Public Use
  Company Number: PHHY2010GR50808

PATIENT
  Age: 42 Year
  Sex: Female

DRUGS (5)
  1. AFINITOR [Suspect]
     Indication: RENAL CELL CARCINOMA
     Dosage: 10 MG, DAILY
     Dates: start: 20100701, end: 20100710
  2. AFINITOR [Suspect]
     Dosage: 10 MG, DAILY
     Dates: start: 20100720
  3. AFINITOR [Suspect]
     Dosage: 5 MG DAILY
  4. APROVEL [Concomitant]
  5. DILTIAZEM HCL [Concomitant]

REACTIONS (10)
  - CHEST PAIN [None]
  - COUGH [None]
  - CREPITATIONS [None]
  - DISCOMFORT [None]
  - DYSPNOEA [None]
  - FATIGUE [None]
  - LUNG INFECTION [None]
  - OEDEMA PERIPHERAL [None]
  - PNEUMONIA [None]
  - PNEUMONITIS [None]
